FAERS Safety Report 7338502-0 (Version None)
Quarter: 2011Q1

REPORT INFORMATION
  Report Type: 
  Country: None (occurrence: None)
  Receive Date: 20110308
  Receipt Date: 20110301
  Transmission Date: 20110831
  Serious: Yes (Hospitalization)
  Sender: FDA-Public Use
  Company Number: CHPA2011US03241

PATIENT
  Sex: Female

DRUGS (1)
  1. CVS STRENGTH UNKNOWN [Suspect]
     Dosage: UNK , UNK
     Route: 062
     Dates: start: 20110221

REACTIONS (2)
  - PULMONARY EMBOLISM [None]
  - DYSPNOEA [None]
